FAERS Safety Report 7223215-6 (Version None)
Quarter: 2011Q1

REPORT INFORMATION
  Report Type: 
  Country: None (occurrence: None)
  Receive Date: 20110112
  Receipt Date: 20100310
  Transmission Date: 20110831
  Serious: No
  Sender: FDA-Public Use
  Company Number: US-ALLERGAN-1003206US

PATIENT
  Sex: Male

DRUGS (9)
  1. METOPROLOL [Concomitant]
  2. LISINOPRIL [Concomitant]
  3. ZYRTEC [Concomitant]
  4. LOTEMAX [Concomitant]
  5. RESTASIS [Suspect]
     Indication: DRY EYE
     Dosage: UNK
  6. LUMIGAN [Concomitant]
  7. PLAVIX [Concomitant]
  8. PREMASOL [Concomitant]
  9. ASPIRIN [Concomitant]

REACTIONS (1)
  - EYE IRRITATION [None]
